FAERS Safety Report 5965415-9 (Version None)
Quarter: 2008Q4

REPORT INFORMATION
  Report Type: 
  Country: None (occurrence: None)
  Receive Date: 20081125
  Receipt Date: 20081006
  Transmission Date: 20090506
  Serious: No
  Sender: FDA-Public Use
  Company Number: US-AMGEN-KDL311607

PATIENT
  Sex: Female

DRUGS (2)
  1. ENBREL [Suspect]
     Indication: PSORIATIC ARTHROPATHY
     Route: 058
     Dates: start: 20080416
  2. ENBREL [Suspect]
     Indication: PSORIASIS

REACTIONS (11)
  - ABDOMINAL PAIN [None]
  - ANXIETY [None]
  - DECREASED APPETITE [None]
  - FEELING JITTERY [None]
  - HEART RATE INCREASED [None]
  - INJECTION SITE DISCOMFORT [None]
  - INSOMNIA [None]
  - NAUSEA [None]
  - REFLUX OESOPHAGITIS [None]
  - VOMITING [None]
  - WEIGHT DECREASED [None]
